FAERS Safety Report 22226214 (Version 1)
Quarter: 2023Q2

REPORT INFORMATION
  Report Type: Spontaneous
  Country: FR (occurrence: FR)
  Receive Date: 20230419
  Receipt Date: 20230419
  Transmission Date: 20230721
  Serious: Yes (Other)
  Sender: FDA-Public Use
  Company Number: None

PATIENT
  Age: 72 Year
  Sex: Female
  Weight: 75 kg

DRUGS (9)
  1. TRACLEER [Suspect]
     Active Substance: BOSENTAN
     Indication: Pulmonary arterial hypertension
     Dosage: 62.5 MG JUSQU^AU 14/12/2022 PUIS AUGMENTATION A 125 MG
     Route: 048
     Dates: start: 20220629, end: 20230217
  2. CALCIUM+VIT D [CALCIUM CARBONATE;COLECALCIFEROL] [Concomitant]
  3. POTASSIUM BICARBONATE [Concomitant]
     Active Substance: POTASSIUM BICARBONATE
  4. LERCANIDIPINE HYDROCHLORIDE [Concomitant]
     Active Substance: LERCANIDIPINE HYDROCHLORIDE
     Dosage: 0-0-1
     Route: 048
  5. BISOPROLOL [Concomitant]
     Active Substance: BISOPROLOL
     Dosage: 1-0-0
     Route: 048
  6. PRAVASTATIN SODIUM [Concomitant]
     Active Substance: PRAVASTATIN SODIUM
     Dosage: 0-0-1
     Route: 048
  7. ESIDREX [Concomitant]
     Active Substance: HYDROCHLOROTHIAZIDE
     Dosage: 1/2-0-0
     Route: 048
  8. ASPIRIN [Concomitant]
     Active Substance: ASPIRIN
     Dosage: 0-1-0
     Route: 048
  9. PANTOPRAZOLE SODIUM [Concomitant]
     Active Substance: PANTOPRAZOLE SODIUM
     Dosage: 0-0-1
     Route: 048

REACTIONS (1)
  - Hepatic cytolysis [Recovered/Resolved]

NARRATIVE: CASE EVENT DATE: 20230217
